FAERS Safety Report 17672017 (Version 1)
Quarter: 2020Q2

REPORT INFORMATION
  Report Type: Spontaneous
  Country: US (occurrence: US)
  Receive Date: 20200415
  Receipt Date: 20200415
  Transmission Date: 20200713
  Serious: Yes (Hospitalization)
  Sender: FDA-Public Use
  Company Number: US-TEVA-2020-US-1222399

PATIENT
  Age: 47 Year
  Sex: Female

DRUGS (4)
  1. OXALIPLATIN. [Concomitant]
     Active Substance: OXALIPLATIN
     Indication: ADENOCARCINOMA OF COLON
     Dosage: AS A PART OF MODIFIED FOLFOX6 REGIMEN
     Route: 065
  2. LEUCOVORIN. [Concomitant]
     Active Substance: LEUCOVORIN
     Indication: ADENOCARCINOMA OF COLON
     Dosage: AS A PART OF MODIFIED FOLFOX6 REGIMEN
     Route: 065
  3. FLUOROURACIL. [Suspect]
     Active Substance: FLUOROURACIL
     Dosage: 1200 MG/M2 DAILY; AS A PART OF MODIFIED FOLFOX6 REGIMEN: 1200MG/M2/DAY CONTINUOUS INFUSION OVER 46 H
     Route: 050
  4. FLUOROURACIL. [Suspect]
     Active Substance: FLUOROURACIL
     Indication: ADENOCARCINOMA OF COLON
     Dosage: AS A PART OF MODIFIED FOLFOX6 REGIMEN: BOLUS OF 400MG/M2
     Route: 050

REACTIONS (1)
  - Cardiomyopathy [Recovered/Resolved]
